FAERS Safety Report 8598227-0 (Version None)
Quarter: 2012Q3

REPORT INFORMATION
  Report Type: 
  Country: None (occurrence: None)
  Receive Date: 20120816
  Receipt Date: 20120809
  Transmission Date: 20120928
  Serious: Yes (Death)
  Sender: FDA-Public Use
  Company Number: US-CELGENEUS-163-21880-12080272

PATIENT
  Sex: Male
  Weight: 113.5 kg

DRUGS (5)
  1. GABAPENTIN [Concomitant]
     Dosage: 600 MILLIGRAM
     Route: 065
  2. ALEVE [Concomitant]
     Dosage: 220 MILLIGRAM
     Route: 065
  3. PERCOCET [Concomitant]
     Dosage: 10MG-650MG
     Route: 065
  4. CEPHALEXIN [Concomitant]
     Dosage: 500 MILLIGRAM
     Route: 065
  5. REVLIMID [Suspect]
     Indication: MULTIPLE MYELOMA
     Dosage: 15 MILLIGRAM
     Route: 048
     Dates: start: 20100625, end: 20120628

REACTIONS (1)
  - DEATH [None]
